FAERS Safety Report 21300072 (Version 1)
Quarter: 2022Q3

REPORT INFORMATION
  Report Type: Spontaneous
  Country: FR (occurrence: FR)
  Receive Date: 20220906
  Receipt Date: 20220906
  Transmission Date: 20221027
  Serious: Yes (Other)
  Sender: FDA-Public Use
  Company Number: None

PATIENT
  Age: 48 Year
  Sex: Female
  Weight: 65 kg

DRUGS (7)
  1. SUFENTANIL [Suspect]
     Active Substance: SUFENTANIL
     Indication: Sedation
     Dosage: NOT SPECIFIED
     Route: 042
     Dates: start: 20220706, end: 20220801
  2. LEVETIRACETAM [Suspect]
     Active Substance: LEVETIRACETAM
     Indication: Product used for unknown indication
     Dosage: NOT SPECIFIED
     Route: 042
     Dates: start: 20220720, end: 20220809
  3. MIDAZOLAM [Suspect]
     Active Substance: MIDAZOLAM
     Indication: Sedation
     Dosage: NOT SPECIFIED
     Route: 042
     Dates: start: 20220709, end: 20220801
  4. LOVENOX [Suspect]
     Active Substance: ENOXAPARIN SODIUM
     Indication: Thrombosis prophylaxis
     Dosage: NOT SPECIFIED
     Route: 042
     Dates: start: 20220723
  5. PIPERACILLIN SODIUM\TAZOBACTAM SODIUM [Suspect]
     Active Substance: PIPERACILLIN SODIUM\TAZOBACTAM SODIUM
     Indication: Infection
     Dosage: NOT SPECIFIED
     Route: 042
     Dates: start: 20220712, end: 20220802
  6. PROPOFOL [Suspect]
     Active Substance: PROPOFOL
     Indication: Sedation
     Dosage: NOT SPECIFIED
     Route: 042
     Dates: start: 20220708, end: 20220801
  7. LACOSAMIDE [Suspect]
     Active Substance: LACOSAMIDE
     Indication: Product used for unknown indication
     Dosage: NOT SPECIFIED
     Route: 042
     Dates: start: 20220721, end: 20220730

REACTIONS (2)
  - Eosinophilia [Unknown]
  - Rash maculo-papular [Unknown]

NARRATIVE: CASE EVENT DATE: 20220730
